FAERS Safety Report 14518191 (Version 1)
Quarter: 2018Q1

REPORT INFORMATION
  Report Type: Spontaneous
  Country: US (occurrence: US)
  Receive Date: 20180212
  Receipt Date: 20180212
  Transmission Date: 20180509
  Serious: No
  Sender: FDA-Public Use
  Company Number: US-PFIZER INC-2018059003

PATIENT
  Age: 57 Year
  Sex: Male
  Weight: 77.98 kg

DRUGS (2)
  1. GABAPENTIN. [Suspect]
     Active Substance: GABAPENTIN
     Indication: BACK PAIN
     Dosage: UNK UNK, DAILY (3500MG-3600MG A DAY)
  2. GABAPENTIN. [Suspect]
     Active Substance: GABAPENTIN
     Dosage: 800 MG, UNK (4-5 TIMES A DAY)
     Route: 048

REACTIONS (2)
  - Overdose [Recovered/Resolved]
  - Drug ineffective for unapproved indication [Recovered/Resolved]
